FAERS Safety Report 19554703 (Version 3)
Quarter: 2021Q3

REPORT INFORMATION
  Report Type: Spontaneous
  Country: JP (occurrence: JP)
  Receive Date: 20210715
  Receipt Date: 20210731
  Transmission Date: 20211014
  Serious: Yes (Hospitalization, Other)
  Sender: FDA-Public Use
  Company Number: JP-ACCORD-231752

PATIENT
  Age: 29 Year
  Sex: Female
  Weight: 48 kg

DRUGS (2)
  1. CABERGOLINE. [Concomitant]
     Active Substance: CABERGOLINE
     Indication: BREAST CANCER
     Dosage: AFTER OOCYTE RETRIEVAL
     Route: 048
  2. LETROZOLE. [Suspect]
     Active Substance: LETROZOLE
     Indication: BREAST CANCER
     Dosage: 5.0 MG/DAY
     Route: 048

REACTIONS (3)
  - Ovarian haemorrhage [Recovering/Resolving]
  - Haemoperitoneum [Recovering/Resolving]
  - Ovarian rupture [Recovering/Resolving]
